FAERS Safety Report 18571274 (Version 3)
Quarter: 2020Q4

REPORT INFORMATION
  Report Type: Spontaneous
  Country: TR (occurrence: TR)
  Receive Date: 20201202
  Receipt Date: 20201221
  Transmission Date: 20210114
  Serious: Yes (Other)
  Sender: FDA-Public Use
  Company Number: TR-GILEAD-2020-0506613

PATIENT
  Age: 55 Year
  Sex: Male

DRUGS (12)
  1. METFORMIN [Concomitant]
     Active Substance: METFORMIN HYDROCHLORIDE
  2. GENVOYA [Suspect]
     Active Substance: COBICISTAT\ELVITEGRAVIR\EMTRICITABINE\TENOFOVIR ALAFENAMIDE FUMARATE
     Indication: HIV INFECTION
     Dosage: UNK
     Route: 065
     Dates: start: 2018
  3. LANSOPRAZOLE. [Concomitant]
     Active Substance: LANSOPRAZOLE
  4. ISONIAZID. [Concomitant]
     Active Substance: ISONIAZID
  5. VALSARTAN. [Concomitant]
     Active Substance: VALSARTAN
  6. GLICLAZIDE [Concomitant]
     Active Substance: GLICLAZIDE
  7. INSULIN [Concomitant]
     Active Substance: INSULIN NOS
  8. BIKTARVY [Concomitant]
     Active Substance: BICTEGRAVIR SODIUM\EMTRICITABINE\TENOFOVIR ALAFENAMIDE FUMARATE
  9. ASA [Concomitant]
     Active Substance: ASPIRIN
  10. ATORVASTATIN [Concomitant]
     Active Substance: ATORVASTATIN
     Dosage: UNK
     Dates: start: 201604
  11. FENOFIBRATE. [Concomitant]
     Active Substance: FENOFIBRATE
  12. B6 [Concomitant]
     Active Substance: PYRIDOXINE HYDROCHLORIDE

REACTIONS (2)
  - Myocardial infarction [Unknown]
  - Drug interaction [Unknown]

NARRATIVE: CASE EVENT DATE: 202008
